FAERS Safety Report 7217312-9 (Version None)
Quarter: 2010Q4

REPORT INFORMATION
  Report Type: 
  Country: None (occurrence: None)
  Receive Date: 20101229
  Receipt Date: 20101222
  Transmission Date: 20110411
  Serious: Yes (Life-Threatening)
  Sender: FDA-Public Use
  Company Number: 2010SP063866

PATIENT
  Age: 26 Year
  Sex: Female

DRUGS (6)
  1. REFLEX (MIRTAZAPINE / 01293201 / ) [Suspect]
     Indication: DEPRESSION
     Dosage: 15 MG;QD;PO
     Route: 048
     Dates: start: 20101019, end: 20101026
  2. SODIUM AZULENE [Concomitant]
  3. SULFONATE [Concomitant]
  4. SERTRALINE HYDROCHLORIDE [Concomitant]
  5. SULPIRIDE [Concomitant]
  6. BROTIZOLAM [Concomitant]

REACTIONS (10)
  - AGITATION [None]
  - ANXIETY [None]
  - COMMUNICATION DISORDER [None]
  - CONDITION AGGRAVATED [None]
  - CONFUSIONAL STATE [None]
  - FEELING GUILTY [None]
  - HYPERPHAGIA [None]
  - IRRITABILITY [None]
  - SEDATION [None]
  - SUICIDAL IDEATION [None]
